FAERS Safety Report 13057892 (Version 1)
Quarter: 2016Q4

REPORT INFORMATION
  Report Type: Spontaneous
  Country: FR (occurrence: FR)
  Receive Date: 20161223
  Receipt Date: 20161223
  Transmission Date: 20170207
  Serious: Yes (Hospitalization, Other)
  Sender: FDA-Public Use
  Company Number: FR-PFIZER INC-2016585854

PATIENT
  Age: 43 Year
  Sex: Female

DRUGS (8)
  1. SUTENT [Suspect]
     Active Substance: SUNITINIB MALATE
     Dosage: 100 MG, DAILY
     Dates: start: 20161117, end: 20161125
  2. SOLUPRED /00016201/ [Concomitant]
     Active Substance: PREDNISOLONE
     Dosage: UNK
  3. TOPALGIC [Concomitant]
     Active Substance: TRAMADOL
     Dosage: UNK
  4. SUTENT [Suspect]
     Active Substance: SUNITINIB MALATE
     Indication: RENAL CANCER METASTATIC
     Dosage: 50 MG, DAILY
     Route: 048
     Dates: start: 20160715
  5. IBUPROFENE [Concomitant]
     Active Substance: IBUPROFEN
     Dosage: UNK
  6. LEVOTHYROX [Concomitant]
     Active Substance: LEVOTHYROXINE
     Dosage: UNK
  7. SUTENT [Suspect]
     Active Substance: SUNITINIB MALATE
     Dosage: 62.5 MG, DAILY
     Route: 048
     Dates: start: 20160825
  8. SUTENT [Suspect]
     Active Substance: SUNITINIB MALATE
     Dosage: 75 MG, DAILY
     Route: 048
     Dates: start: 20160930

REACTIONS (6)
  - Musculoskeletal pain [Recovered/Resolved]
  - Thrombocytopenia [Recovered/Resolved]
  - Corneal degeneration [Unknown]
  - Arthralgia [Recovered/Resolved]
  - Haematuria [Recovered/Resolved]
  - Anaemia [Recovered/Resolved]

NARRATIVE: CASE EVENT DATE: 20161122
